FAERS Safety Report 7812952-8 (Version None)
Quarter: 2011Q4

REPORT INFORMATION
  Report Type: 
  Country: None (occurrence: None)
  Receive Date: 20111013
  Receipt Date: 20111007
  Transmission Date: 20120403
  Serious: Yes (Other)
  Sender: FDA-Public Use
  Company Number: US-CEPHALON-2011005303

PATIENT
  Age: 65 Year
  Sex: Male

DRUGS (2)
  1. NUVIGIL [Suspect]
     Indication: HYPERSOMNIA
     Route: 048
     Dates: start: 20111004, end: 20111007
  2. NUVIGIL [Suspect]
     Indication: SLEEP APNOEA SYNDROME
     Route: 048
     Dates: start: 20111003, end: 20111003

REACTIONS (5)
  - RASH MACULO-PAPULAR [None]
  - EXFOLIATIVE RASH [None]
  - BRUXISM [None]
  - STOMATITIS [None]
  - RASH ERYTHEMATOUS [None]
